FAERS Safety Report 17885476 (Version 1)
Quarter: 2020Q2

REPORT INFORMATION
  Report Type: Spontaneous
  Country: DE (occurrence: DE)
  Receive Date: 20200611
  Receipt Date: 20200611
  Transmission Date: 20200714
  Serious: Yes (Hospitalization)
  Sender: FDA-Public Use
  Company Number: NVSC2020DE162568

PATIENT
  Sex: Female

DRUGS (2)
  1. ENTRESTO [Suspect]
     Active Substance: SACUBITRIL\VALSARTAN
     Dosage: 0.5 DF, BID (24MG/26MG) (2 X HALF A TABLET )
     Route: 065
     Dates: start: 2019
  2. ENTRESTO [Suspect]
     Active Substance: SACUBITRIL\VALSARTAN
     Indication: PRODUCT USED FOR UNKNOWN INDICATION
     Dosage: 1 DF, BID (24MG/26MG) (MG (2 DF QD) WAS STARTED ABOUT 1.5 YEARS AGO)
     Route: 065
     Dates: start: 2018

REACTIONS (5)
  - Dizziness [Unknown]
  - Cardiac failure [Recovered/Resolved]
  - Wrong technique in product usage process [Not Recovered/Not Resolved]
  - Asthenia [Unknown]
  - Incorrect dose administered [Not Recovered/Not Resolved]

NARRATIVE: CASE EVENT DATE: 201905
